FAERS Safety Report 5335044-9 (Version None)
Quarter: 2007Q2

REPORT INFORMATION
  Report Type: 
  Country: None (occurrence: None)
  Receive Date: 20070525
  Receipt Date: 20070524
  Transmission Date: 20071010
  Serious: Yes (Hospitalization)
  Sender: FDA-Public Use
  Company Number: A0652882A

PATIENT
  Age: 82 Year
  Sex: Female

DRUGS (5)
  1. AVANDIA [Suspect]
     Dosage: 8MG PER DAY
     Route: 048
     Dates: start: 19990101, end: 20070101
  2. DIGOXIN [Concomitant]
  3. BLOOD PRESSURE MEDICATION [Concomitant]
  4. SYNTHROID [Concomitant]
  5. WATER PILL [Concomitant]

REACTIONS (2)
  - ABDOMINAL PAIN UPPER [None]
  - OEDEMA PERIPHERAL [None]
